FAERS Safety Report 7340187-4 (Version None)
Quarter: 2011Q1

REPORT INFORMATION
  Report Type: 
  Country: None (occurrence: None)
  Receive Date: 20110309
  Receipt Date: 20110303
  Transmission Date: 20110831
  Serious: Yes (Other)
  Sender: FDA-Public Use
  Company Number: IE-BRISTOL-MYERS SQUIBB COMPANY-15005036

PATIENT
  Age: 27 Year
  Sex: Female

DRUGS (3)
  1. ATAZANAVIR [Suspect]
     Indication: HIV INFECTION
     Route: 048
     Dates: start: 20080809, end: 20080930
  2. TRUVADA [Suspect]
     Indication: HIV INFECTION
     Dosage: 1 DF - 1 TABS
     Route: 048
     Dates: start: 20080809, end: 20080930
  3. RITONAVIR [Suspect]
     Indication: HIV INFECTION
     Route: 048
     Dates: start: 20080809, end: 20080930

REACTIONS (4)
  - NORMAL NEWBORN [None]
  - CAESAREAN SECTION [None]
  - DRUG EXPOSURE DURING PREGNANCY [None]
  - PREGNANCY [None]
